FAERS Safety Report 11320025 (Version 6)
Quarter: 2015Q4

REPORT INFORMATION
  Report Type: Spontaneous
  Country: US (occurrence: US)
  Receive Date: 20150729
  Receipt Date: 20151012
  Transmission Date: 20160304
  Serious: Yes (Other)
  Sender: FDA-Public Use
  Company Number: US-PFIZER INC-2015249969

PATIENT
  Age: 58 Year
  Sex: Female
  Weight: 132 kg

DRUGS (5)
  1. ZANTAC [Concomitant]
     Active Substance: RANITIDINE HYDROCHLORIDE
     Dosage: 10 MG, UNK
  2. XANAX [Suspect]
     Active Substance: ALPRAZOLAM
     Indication: EMOTIONAL DISORDER
     Dosage: 1 MG, 4X/DAY
  3. CYTOMEL [Concomitant]
     Active Substance: LIOTHYRONINE SODIUM
     Dosage: 25 ?G, UNK
  4. XANAX [Suspect]
     Active Substance: ALPRAZOLAM
     Indication: PANIC ATTACK
     Dosage: 4 MG, DAILY
  5. XANAX [Suspect]
     Active Substance: ALPRAZOLAM
     Indication: ANXIETY

REACTIONS (14)
  - Photosensitivity reaction [Recovered/Resolved]
  - Product quality issue [Not Recovered/Not Resolved]
  - Skin exfoliation [Recovered/Resolved]
  - Cytopenia [Recovered/Resolved]
  - Laceration [Unknown]
  - Anaphylactic reaction [Recovered/Resolved]
  - Oedema [Recovered/Resolved]
  - Drug ineffective [Not Recovered/Not Resolved]
  - Dyspnoea [Recovered/Resolved]
  - Cardiac failure [Recovered/Resolved]
  - Haemorrhage [Recovered/Resolved]
  - Suspected counterfeit product [Not Recovered/Not Resolved]
  - Abdominal distension [Recovered/Resolved]
  - Disease recurrence [Not Recovered/Not Resolved]

NARRATIVE: CASE EVENT DATE: 20150723
